FAERS Safety Report 17401559 (Version 3)
Quarter: 2020Q1

REPORT INFORMATION
  Report Type: Spontaneous
  Country: JP (occurrence: JP)
  Receive Date: 20200211
  Receipt Date: 20200211
  Transmission Date: 20200409
  Serious: Yes (Other)
  Sender: FDA-Public Use
  Company Number: JP-PFIZER INC-2020045122

PATIENT
  Age: 61 Year
  Sex: Female
  Weight: 64 kg

DRUGS (2)
  1. DOXORUBICIN HCL [Suspect]
     Active Substance: DOXORUBICIN HYDROCHLORIDE
     Indication: ENDOMETRIAL CANCER
     Dosage: UNK
  2. DACARBAZINE. [Suspect]
     Active Substance: DACARBAZINE
     Indication: ENDOMETRIAL CANCER
     Dosage: UNK

REACTIONS (1)
  - Stress cardiomyopathy [Recovered/Resolved]
